FAERS Safety Report 5312642-X (Version None)
Quarter: 2007Q2

REPORT INFORMATION
  Report Type: 
  Country: None (occurrence: None)
  Receive Date: 20070430
  Receipt Date: 20070214
  Transmission Date: 20071010
  Serious: No
  Sender: FDA-Public Use
  Company Number: 2007UW02989

PATIENT
  Age: 40 Year
  Sex: Male
  Weight: 120.2 kg

DRUGS (6)
  1. NEXIUM [Suspect]
     Indication: FOOD INTOLERANCE
     Route: 048
  2. CENTRUM SILVER [Concomitant]
  3. GINKOBA MEMORY [Concomitant]
  4. METFORMIN HCL [Concomitant]
  5. JANUVIA [Concomitant]
  6. ZESTRIL [Concomitant]
     Route: 048

REACTIONS (2)
  - DYSGEUSIA [None]
  - PSYCHOMOTOR HYPERACTIVITY [None]
